FAERS Safety Report 19287839 (Version 1)
Quarter: 2021Q2

REPORT INFORMATION
  Report Type: Report from Study
  Country: FR (occurrence: FR)
  Receive Date: 20210521
  Receipt Date: 20210521
  Transmission Date: 20210717
  Serious: Yes (Hospitalization, Other)
  Sender: FDA-Public Use
  Company Number: FR-ASTELLAS-2021US018631

PATIENT
  Age: 47 Year
  Sex: Male

DRUGS (6)
  1. TACROLIMUS. [Suspect]
     Active Substance: TACROLIMUS
     Indication: RENAL TRANSPLANT
     Dosage: UNK, UNKNOWN FREQ.
     Route: 065
     Dates: start: 2017, end: 2018
  2. TACROLIMUS. [Interacting]
     Active Substance: TACROLIMUS
     Dosage: UNK, UNKNOWN FREQ.(80% DOSE REDUCTION)
     Route: 065
     Dates: start: 2018
  3. TACROLIMUS. [Interacting]
     Active Substance: TACROLIMUS
     Dosage: UNK, UNKNOWN FREQ.(DOSE FURTHER REDUCED)
     Route: 065
     Dates: start: 2018
  4. FLUCONAZOLE. [Interacting]
     Active Substance: FLUCONAZOLE
     Indication: MENINGITIS CRYPTOCOCCAL
     Route: 065
     Dates: start: 2018
  5. FLUCONAZOLE. [Interacting]
     Active Substance: FLUCONAZOLE
     Dosage: UNK UNK, UNKNOWN FREQ. (DOSE REDUCTION)
     Route: 065
     Dates: start: 2018
  6. MMF [Concomitant]
     Active Substance: MYCOPHENOLATE MOFETIL
     Indication: RENAL TRANSPLANT
     Dosage: UNK UNK, UNKNOWN FREQ. (INTERRUPTION)
     Route: 065

REACTIONS (3)
  - Immunosuppressant drug level increased [Unknown]
  - Drug interaction [Unknown]
  - Meningitis cryptococcal [Recovered/Resolved]

NARRATIVE: CASE EVENT DATE: 2018
